FAERS Safety Report 11512861 (Version 1)
Quarter: 2015Q3

REPORT INFORMATION
  Report Type: Spontaneous
  Country: US (occurrence: US)
  Receive Date: 20150903
  Receipt Date: 20150903
  Transmission Date: 20151125
  Serious: No
  Sender: FDA-Public Use
  Company Number: US-ELI_LILLY_AND_COMPANY-US201004003278

PATIENT
  Sex: Male

DRUGS (2)
  1. HUMALOG [Suspect]
     Active Substance: INSULIN LISPRO
     Indication: DIABETES MELLITUS
     Dosage: 9 U, 3/D
  2. HUMALOG [Suspect]
     Active Substance: INSULIN LISPRO
     Indication: DIABETES MELLITUS
     Dosage: 9 U, 3/D
     Dates: start: 2004

REACTIONS (9)
  - Blood glucose increased [Unknown]
  - Drug dispensing error [Unknown]
  - Muscular weakness [Unknown]
  - Peripheral swelling [Unknown]
  - Injection site macule [Recovered/Resolved]
  - Arthropod bite [Unknown]
  - Neuropathy peripheral [Not Recovered/Not Resolved]
  - Stress [Unknown]
  - Joint injury [Unknown]

NARRATIVE: CASE EVENT DATE: 2008
